FAERS Safety Report 6260869-5 (Version None)
Quarter: 2009Q3

REPORT INFORMATION
  Report Type: 
  Country: None (occurrence: None)
  Receive Date: 20090707
  Receipt Date: 20090629
  Transmission Date: 20100115
  Serious: Yes (Death)
  Sender: FDA-Public Use
  Company Number: CHNY2009FR02650

PATIENT
  Age: 66 Year
  Sex: Male

DRUGS (7)
  1. HYOSCINE HBR HYT [Suspect]
     Dosage: TRANSDERMAL
     Route: 062
     Dates: start: 20090306
  2. MORPHINE SULFATE [Suspect]
     Dosage: 10 MG, OD, ORAL
     Route: 048
     Dates: start: 20090217
  3. NEXIUM [Suspect]
     Indication: OESOPHAGITIS
     Dosage: 40 MG,QD, INTRAVENOUS
     Route: 042
     Dates: start: 20090413, end: 20090420
  4. SOLU-MEDROL [Suspect]
     Indication: DECREASED APPETITE
     Dosage: 1 DF, QD, INTRAVENOUS
     Route: 042
     Dates: start: 20090413
  5. ATARAX [Suspect]
     Indication: INSOMNIA
     Dosage: 1 DF, QD, INTRAVENOUS
     Route: 042
  6. PAROXETINE HYDROCHLORIDE [Suspect]
     Dosage: 1 DF, QD, ORAL
     Route: 048
     Dates: start: 20090412
  7. DURAGESIC-100 [Suspect]
     Dosage: 1 DF, QD, TRANSDERMAL
     Route: 062
     Dates: start: 20090414

REACTIONS (6)
  - ANAEMIA [None]
  - DECREASED APPETITE [None]
  - INSOMNIA [None]
  - MALNUTRITION [None]
  - OESOPHAGITIS [None]
  - THROMBOCYTOPENIA [None]
